APPROVED DRUG PRODUCT: PREMARIN
Active Ingredient: ESTROGENS, CONJUGATED
Strength: 2.5MG
Dosage Form/Route: TABLET;ORAL
Application: N004782 | Product #002
Applicant: WYETH PHARMACEUTICALS LLC
Approved: Approved Prior to Jan 1, 1982 | RLD: No | RS: No | Type: DISCN